FAERS Safety Report 18057321 (Version 1)
Quarter: 2020Q3

REPORT INFORMATION
  Report Type: Other
  Country: SE (occurrence: SE)
  Receive Date: 20200723
  Receipt Date: 20200723
  Transmission Date: 20201103
  Serious: Yes (Death)
  Sender: FDA-Public Use
  Company Number: SE-CELLTRION INC.-2020SE024522

PATIENT

DRUGS (1)
  1. RITEMVIA [Suspect]
     Active Substance: RITUXIMAB
     Indication: MULTIPLE SCLEROSIS
     Dosage: 2020?02?05; 500 MG EVERY 6 MONTHS
     Route: 042
     Dates: start: 20170815, end: 20200205

REACTIONS (2)
  - Off label use [Unknown]
  - Tick-borne viral encephalitis [Fatal]

NARRATIVE: CASE EVENT DATE: 20200612
